FAERS Safety Report 4800108-2 (Version None)
Quarter: 2005Q4

REPORT INFORMATION
  Report Type: 
  Country: None (occurrence: None)
  Receive Date: 20051017
  Receipt Date: 20051003
  Transmission Date: 20060501
  Serious: Yes (Other)
  Sender: FDA-Public Use
  Company Number: US-GLAXOSMITHKLINE-A0577878A

PATIENT
  Age: 48 Year
  Sex: Male

DRUGS (3)
  1. LAMICTAL [Suspect]
     Indication: BIPOLAR DISORDER
     Route: 048
     Dates: start: 20050622, end: 20050829
  2. ABILIFY [Concomitant]
     Dosage: 15MG PER DAY
  3. DIAZEPAM [Concomitant]
     Dosage: 2MG AT NIGHT

REACTIONS (2)
  - HYPERAESTHESIA [None]
  - SKIN BURNING SENSATION [None]
